FAERS Safety Report 5251443-8 (Version None)
Quarter: 2007Q1

REPORT INFORMATION
  Report Type: 
  Country: None (occurrence: None)
  Receive Date: 20070228
  Receipt Date: 20060503
  Transmission Date: 20070707
  Serious: No
  Sender: FDA-Public Use
  Company Number: US-GLAXOSMITHKLINE-A0604896A

PATIENT
  Sex: Female

DRUGS (1)
  1. LAMICTAL [Suspect]
     Indication: NEUROPATHY
     Dosage: 50MG TWICE PER DAY
     Route: 048
     Dates: start: 20060101

REACTIONS (5)
  - BLOOD PRESSURE DECREASED [None]
  - DIZZINESS [None]
  - HYPERSENSITIVITY [None]
  - OEDEMA MOUTH [None]
  - STOMATITIS [None]
